FAERS Safety Report 4362154-5 (Version None)
Quarter: 2004Q2

REPORT INFORMATION
  Report Type: 
  Country: None (occurrence: None)
  Receive Date: 20040517
  Receipt Date: 20040504
  Transmission Date: 20050107
  Serious: Yes (Hospitalization)
  Sender: FDA-Public Use
  Company Number: 2004030732

PATIENT
  Sex: Male

DRUGS (3)
  1. DOXAZOSIN [Suspect]
     Indication: BENIGN PROSTATIC HYPERPLASIA
     Dosage: 4 MG (4 MG, 1 IN 1 D), ORAL
     Route: 048
     Dates: start: 20020201
  2. LOSARTAN POTASSIUM [Concomitant]
  3. PROPATYLNITRATE [Concomitant]

REACTIONS (2)
  - INFLAMMATION [None]
  - URETHRAL DISORDER [None]
